FAERS Safety Report 5863619-7 (Version None)
Quarter: 2008Q3

REPORT INFORMATION
  Report Type: 
  Country: None (occurrence: None)
  Receive Date: 20080828
  Receipt Date: 20080820
  Transmission Date: 20090109
  Serious: Yes (Life-Threatening, Hospitalization)
  Sender: FDA-Public Use
  Company Number: US-ELI_LILLY_AND_COMPANY-US200808004556

PATIENT
  Sex: Male

DRUGS (17)
  1. BYETTA [Suspect]
     Indication: TYPE 2 DIABETES MELLITUS
     Dosage: 5 UG, 2/D
     Route: 058
     Dates: start: 20051201
  2. BYETTA [Suspect]
     Dosage: 5 UG, 2/D
     Route: 058
     Dates: start: 20060101, end: 20060101
  3. BYETTA [Suspect]
     Dosage: 10 UG, 2/D
     Route: 058
     Dates: start: 20060101
  4. FISH OIL [Concomitant]
     Dosage: UNK, 2/D
  5. CINNAMON [Concomitant]
     Dosage: UNK, 2/D
  6. SAW PALMETTO [Concomitant]
     Dosage: UNK, DAILY (1/D)
  7. FORTAMET [Concomitant]
     Dosage: UNK, 2/D
  8. AMARYL [Concomitant]
     Dosage: UNK, DAILY (1/D)
  9. ACTOS [Concomitant]
     Dosage: UNK, DAILY (1/D)
  10. ASPIRIN [Concomitant]
     Dosage: UNK, DAILY (1/D)
  11. PLAVIX [Concomitant]
     Dosage: UNK, DAILY (1/D)
  12. LEXAPRO [Concomitant]
     Dosage: UNK, DAILY (1/D)
  13. LUNESTA [Concomitant]
     Dosage: UNK, EACH EVENING
  14. YEAST [Concomitant]
     Dosage: UNK, 2/D
  15. GABITRIL [Concomitant]
     Dosage: UNK, UNKNOWN
  16. ANALGESICS [Concomitant]
     Dosage: UNK, UNKNOWN
  17. NEURONTIN [Concomitant]
     Dosage: UNK, UNKNOWN

REACTIONS (9)
  - AMNESIA [None]
  - APHASIA [None]
  - CAROTID ARTERY BYPASS [None]
  - CAROTID ARTERY DISSECTION [None]
  - CEREBROVASCULAR ACCIDENT [None]
  - DYSARTHRIA [None]
  - LOSS OF CONSCIOUSNESS [None]
  - NERVOUS SYSTEM DISORDER [None]
  - RESPIRATORY ARREST [None]
